FAERS Safety Report 19141128 (Version 7)
Quarter: 2021Q2

REPORT INFORMATION
  Report Type: Report from Study
  Country: US (occurrence: US)
  Receive Date: 20210415
  Receipt Date: 20210617
  Transmission Date: 20210717
  Serious: Yes (Death)
  Sender: FDA-Public Use
  Company Number: US-AMGEN-USACT2021056598

PATIENT
  Age: 66 Year
  Sex: Male
  Weight: 88.9 kg

DRUGS (33)
  1. MOXIFLOXACIN. [Concomitant]
     Active Substance: MOXIFLOXACIN
     Dosage: 400 MILLIGRAM
     Route: 048
     Dates: start: 20210322, end: 20210327
  2. TRANEXAMIC ACID. [Concomitant]
     Active Substance: TRANEXAMIC ACID
     Dosage: 650 MILLIGRAM
     Route: 048
     Dates: start: 20210406, end: 20210408
  3. CALCIUM CARBONATE. [Concomitant]
     Active Substance: CALCIUM CARBONATE
     Dosage: 1 GRAM
     Route: 048
     Dates: start: 20210327, end: 20210402
  4. DIPHENHYDRAMINE. [Concomitant]
     Active Substance: DIPHENHYDRAMINE
     Dosage: 12.5?50 MILLIGRAM
     Route: 042
     Dates: start: 20210327, end: 20210409
  5. FAMOTIDINE. [Concomitant]
     Active Substance: FAMOTIDINE
     Dosage: 20 MILLIGRAM
     Route: 042
     Dates: start: 20210325, end: 20210409
  6. INSULIN [Concomitant]
     Active Substance: INSULIN NOS
     Dosage: 1 UNK
     Route: 050
     Dates: start: 20210325
  7. PAROXETINE. [Concomitant]
     Active Substance: PAROXETINE
     Dosage: 10 MILLIGRAM
     Route: 048
     Dates: start: 20200917
  8. AMLODIPINE [Concomitant]
     Active Substance: AMLODIPINE BESYLATE
     Dosage: 5 MILLIGRAM
     Route: 048
     Dates: start: 20201012
  9. AMG?427. [Suspect]
     Active Substance: AMG-427
     Indication: ACUTE MYELOID LEUKAEMIA
     Dosage: 72 MICROGRAM
     Route: 042
     Dates: start: 20210405
  10. JARDIANCE [Concomitant]
     Active Substance: EMPAGLIFLOZIN
     Dosage: 10 MILLIGRAM
     Route: 048
     Dates: start: 20201020
  11. ONDANSETRON [Concomitant]
     Active Substance: ONDANSETRON
     Dosage: 4?8 MILLIGRAM
     Route: 042
     Dates: start: 20210328, end: 20210331
  12. VALACYCLOVIR [Concomitant]
     Active Substance: VALACYCLOVIR HYDROCHLORIDE
     Dosage: 500 MILLIGRAM
     Route: 048
     Dates: start: 20200925
  13. BISACODYL. [Concomitant]
     Active Substance: BISACODYL
     Dosage: 5 MILLIGRAM
     Route: 048
     Dates: start: 20210330, end: 20210330
  14. CHLORHEXIDINE [Concomitant]
     Active Substance: CHLORHEXIDINE
     Dosage: 0.12 UNK
     Route: 050
     Dates: start: 20210407, end: 20210408
  15. ACETAMINOPHEN. [Concomitant]
     Active Substance: ACETAMINOPHEN
     Dosage: 1 GRAM, 650 MILLIGRAM
     Route: 048
     Dates: start: 20210326
  16. FUROSEMIDE. [Concomitant]
     Active Substance: FUROSEMIDE
     Dosage: 20?80 MILLIGRAM
     Route: 042
     Dates: start: 20210402, end: 20210409
  17. LOPERAMIDE [Concomitant]
     Active Substance: LOPERAMIDE
     Dosage: 2 MILLIGRAM
     Route: 048
     Dates: start: 20210406, end: 20210406
  18. LORAZEPAM. [Concomitant]
     Active Substance: LORAZEPAM
     Dosage: 0.5 MILLIGRAM
     Route: 042
     Dates: start: 20210402, end: 20210409
  19. ZOSYN [Concomitant]
     Active Substance: PIPERACILLIN SODIUM\TAZOBACTAM SODIUM
     Dosage: 4.5 GRAM
     Route: 042
     Dates: start: 20210328, end: 20210408
  20. ALLOPURINOL. [Concomitant]
     Active Substance: ALLOPURINOL
     Dosage: 300 MILLIGRAM
     Route: 048
     Dates: start: 20210406, end: 20210408
  21. CHLORASEPTIC SORE THROAT [Concomitant]
     Active Substance: PHENOL
     Dosage: 1 UNK
     Route: 050
     Dates: start: 20210406, end: 20210407
  22. RED BLOOD CELLS, CONCENTRATED [Concomitant]
     Active Substance: HUMAN RED BLOOD CELL
     Dosage: 1 UNK
     Route: 042
     Dates: start: 20210322, end: 20210409
  23. ETANERCEPT [Suspect]
     Active Substance: ETANERCEPT
     Indication: CYTOKINE RELEASE SYNDROME
     Dosage: 50 MILLIGRAM
     Route: 058
     Dates: start: 20210403
  24. DOCUSATE SODIUM. [Concomitant]
     Active Substance: DOCUSATE SODIUM
     Dosage: 100 MILLIGRAM
     Route: 048
     Dates: start: 20210329, end: 20210329
  25. VANCOMYCIN [Concomitant]
     Active Substance: VANCOMYCIN
     Dosage: 1 GRAM
     Route: 042
     Dates: start: 20210330, end: 20210330
  26. TOCILIZUMAB. [Concomitant]
     Active Substance: TOCILIZUMAB
     Dosage: 380?780 MILLIGRAM
     Route: 042
     Dates: start: 20210405, end: 20210409
  27. PROCHLORPERAZINE. [Concomitant]
     Active Substance: PROCHLORPERAZINE
     Dosage: 5?10 MILLIGRAM
     Route: 042
     Dates: start: 20210331, end: 20210406
  28. DEXAMETHASONE. [Concomitant]
     Active Substance: DEXAMETHASONE
     Dosage: 8 MILLIGRAM
     Route: 042
     Dates: start: 20210405, end: 20210410
  29. PLATELETS [Concomitant]
     Active Substance: HUMAN PLATELET, ALLOGENIC
     Dosage: 1?2 UNK
     Route: 042
     Dates: start: 20210322, end: 20210409
  30. LEVOTHYROXINE. [Concomitant]
     Active Substance: LEVOTHYROXINE
     Dosage: 100 MICROGRAM
     Route: 048
     Dates: start: 20190708
  31. ALPRAZOLAM. [Concomitant]
     Active Substance: ALPRAZOLAM
     Dosage: 0.5 MILLIGRAM
     Route: 048
     Dates: start: 20201006
  32. MORPHINE [Concomitant]
     Active Substance: MORPHINE
     Dosage: 2?6 MILLIGRAM
     Route: 042
     Dates: start: 20210328, end: 20210410
  33. PANTOPRAZOLE [Concomitant]
     Active Substance: PANTOPRAZOLE
     Dosage: 40 MILLIGRAM
     Route: 042
     Dates: start: 20210405, end: 20210409

REACTIONS (1)
  - Haemophagocytic lymphohistiocytosis [Fatal]

NARRATIVE: CASE EVENT DATE: 20210409
